FAERS Safety Report 18665561 (Version 1)
Quarter: 2020Q4

REPORT INFORMATION
  Report Type: Spontaneous
  Country: GB (occurrence: GB)
  Receive Date: 20201226
  Receipt Date: 20201226
  Transmission Date: 20210114
  Serious: Yes (Other)
  Sender: FDA-Public Use
  Company Number: GB-ALKEM LABORATORIES LIMITED-GB-ALKEM-2020-04768

PATIENT
  Age: 10 Year
  Sex: Male

DRUGS (11)
  1. TREOSULFAN [Suspect]
     Active Substance: TREOSULFAN
     Indication: BONE MARROW CONDITIONING REGIMEN
     Dosage: UNK, (EVERY)
     Route: 065
  2. FLUCONAZOLE. [Concomitant]
     Active Substance: FLUCONAZOLE
     Dosage: UNK
  3. RUXOLITINIB [Concomitant]
     Active Substance: RUXOLITINIB
     Indication: APHTHOUS ULCER
     Dosage: UNK, (EVERY)
     Route: 065
  4. MYCOPHENOLATE MOFETIL. [Suspect]
     Active Substance: MYCOPHENOLATE MOFETIL
     Indication: PROPHYLAXIS AGAINST GRAFT VERSUS HOST DISEASE
     Dosage: UNK, (EVERY)
     Route: 065
  5. ALEMTUZUMAB [Suspect]
     Active Substance: ALEMTUZUMAB
     Indication: BONE MARROW CONDITIONING REGIMEN
     Dosage: UNK, (EVERY)
     Route: 065
  6. FLUDARABINE PHOSPHATE. [Suspect]
     Active Substance: FLUDARABINE PHOSPHATE
     Indication: BONE MARROW CONDITIONING REGIMEN
     Dosage: UNK, (EVERY)
     Route: 065
  7. G-CSF [Concomitant]
     Active Substance: GRANULOCYTE COLONY-STIMULATING FACTOR NOS
     Indication: BONE MARROW CONDITIONING REGIMEN
     Dosage: UNK
     Route: 065
  8. PLERIXAFOR [Concomitant]
     Active Substance: PLERIXAFOR
     Indication: BONE MARROW CONDITIONING REGIMEN
     Dosage: UNK,(EVERY)
     Route: 065
  9. FLUCONAZOLE. [Concomitant]
     Active Substance: FLUCONAZOLE
     Indication: ANTIFUNGAL PROPHYLAXIS
     Dosage: UNK, (EVERY)
     Route: 065
  10. RUXOLITINIB [Concomitant]
     Active Substance: RUXOLITINIB
     Indication: FATIGUE
     Dosage: 25 MILLIGRAM, BID
     Route: 065
  11. CICLOSPORINE [Suspect]
     Active Substance: CYCLOSPORINE
     Indication: PROPHYLAXIS AGAINST GRAFT VERSUS HOST DISEASE
     Dosage: UNK, (EVERY)
     Route: 065

REACTIONS (2)
  - Adenovirus infection [Recovered/Resolved]
  - Off label use [Unknown]
